FAERS Safety Report 6347193-7 (Version None)
Quarter: 2009Q3

REPORT INFORMATION
  Report Type: 
  Country: None (occurrence: None)
  Receive Date: 20090910
  Receipt Date: 20090831
  Transmission Date: 20100115
  Serious: Yes (Hospitalization)
  Sender: FDA-Public Use
  Company Number: SG-ROCHE-653801

PATIENT
  Age: 11 Year
  Sex: Male

DRUGS (3)
  1. TAMIFLU [Suspect]
     Indication: DRUG USE FOR UNKNOWN INDICATION
     Route: 048
     Dates: start: 20090826, end: 20090827
  2. FLUIMUCIL [Concomitant]
  3. PARACETAMOL [Concomitant]

REACTIONS (1)
  - DELIRIUM FEBRILE [None]
